FAERS Safety Report 7010943-0 (Version None)
Quarter: 2010Q3

REPORT INFORMATION
  Report Type: 
  Country: None (occurrence: None)
  Receive Date: 20100922
  Receipt Date: 20100922
  Transmission Date: 20110219
  Serious: Yes (Hospitalization, Disabling)
  Sender: FDA-Public Use
  Company Number: None

PATIENT
  Age: 47 Year
  Sex: Female
  Weight: 99.3377 kg

DRUGS (1)
  1. IODINE [Suspect]
     Dosage: ONCE
     Dates: start: 20020614

REACTIONS (5)
  - IMPAIRED HEALING [None]
  - INCORRECT DRUG ADMINISTRATION DURATION [None]
  - SCAR [None]
  - SKIN DISORDER [None]
  - SKIN LESION [None]
